FAERS Safety Report 13610799 (Version 1)
Quarter: 2017Q2

REPORT INFORMATION
  Report Type: Spontaneous
  Country: TR (occurrence: TR)
  Receive Date: 20170605
  Receipt Date: 20170605
  Transmission Date: 20170830
  Serious: Yes (Other)
  Sender: FDA-Public Use
  Company Number: TR-PFIZER INC-2017239113

PATIENT
  Age: 65 Year
  Sex: Male

DRUGS (4)
  1. EXFORGE [Concomitant]
     Active Substance: AMLODIPINE BESYLATE\VALSARTAN
     Indication: HYPERTENSION
  2. ETKINIA [Suspect]
     Active Substance: RASAGILINE MESYLATE
  3. NEURONTIN [Suspect]
     Active Substance: GABAPENTIN
     Indication: PARKINSON^S DISEASE
  4. MADOPAR [Suspect]
     Active Substance: BENSERAZIDE HYDROCHLORIDE\LEVODOPA

REACTIONS (5)
  - Influenza [Unknown]
  - Product use in unapproved indication [Unknown]
  - Blood pressure increased [Unknown]
  - Blood glucose increased [Unknown]
  - Hypersensitivity [Not Recovered/Not Resolved]

NARRATIVE: CASE EVENT DATE: 20170527
